FAERS Safety Report 8972350 (Version 1)
Quarter: 2012Q4

REPORT INFORMATION
  Report Type: 
  Country: US (occurrence: US)
  Receive Date: 20121219
  Receipt Date: 20121219
  Transmission Date: 20130627
  Serious: Yes (Death)
  Sender: FDA-Public Use
  Company Number: US-MYLANLABS-2012S1009923

PATIENT
  Age: 29 Year
  Sex: Male
  Weight: 108.86 kg

DRUGS (5)
  1. DILTIAZEM [Suspect]
  2. CODEINE [Suspect]
  3. DIAZEPAM [Suspect]
  4. NORDIAZEPAM [Suspect]
  5. MORPHINE [Suspect]

REACTIONS (1)
  - Accidental overdose [Fatal]
